FAERS Safety Report 25144124 (Version 1)
Quarter: 2025Q2

REPORT INFORMATION
  Report Type: Spontaneous
  Country: US (occurrence: US)
  Receive Date: 20250401
  Receipt Date: 20250401
  Transmission Date: 20250717
  Serious: Yes (Other)
  Sender: AUROBINDO
  Company Number: US-AUROBINDO-AUR-APL-2024-016035

PATIENT

DRUGS (3)
  1. SERTRALINE HYDROCHLORIDE [Suspect]
     Active Substance: SERTRALINE HYDROCHLORIDE
     Indication: Sleep disorder
     Route: 065
  2. SERTRALINE HYDROCHLORIDE [Concomitant]
     Active Substance: SERTRALINE HYDROCHLORIDE
     Indication: Product used for unknown indication
     Route: 065
  3. TRAZODONE [Concomitant]
     Active Substance: TRAZODONE HYDROCHLORIDE
     Indication: Product used for unknown indication
     Route: 065

REACTIONS (19)
  - Erectile dysfunction [Unknown]
  - Suicidal ideation [Unknown]
  - Agitation [Unknown]
  - Anxiety [Unknown]
  - Cognitive disorder [Unknown]
  - Depression [Unknown]
  - Fatigue [Unknown]
  - Genital disorder [Unknown]
  - Hypogonadism [Unknown]
  - Insomnia [Unknown]
  - Male sexual dysfunction [Unknown]
  - Panic attack [Unknown]
  - Penile size reduced [Unknown]
  - Testicular disorder [Unknown]
  - Paraesthesia [Unknown]
  - Urological examination abnormal [Unknown]
  - Drug ineffective [Unknown]
  - Product formulation issue [Unknown]
  - Therapy cessation [Unknown]
